FAERS Safety Report 14620204 (Version 1)
Quarter: 2018Q1

REPORT INFORMATION
  Report Type: Report from Study
  Country: JP (occurrence: JP)
  Receive Date: 20180309
  Receipt Date: 20180309
  Transmission Date: 20180509
  Serious: Yes (Hospitalization, Other)
  Sender: FDA-Public Use
  Company Number: PHJP2016JP034178

PATIENT
  Age: 27 Year
  Sex: Male
  Weight: 78 kg

DRUGS (18)
  1. TACROLIMUS MONOHYDRATE [Concomitant]
     Active Substance: TACROLIMUS
     Dosage: 8.5 MG, UNK
     Route: 065
     Dates: start: 20171109, end: 20171109
  2. MYCOPHENOLATE MOFETIL. [Concomitant]
     Active Substance: MYCOPHENOLATE MOFETIL
     Indication: RENAL TRANSPLANT
     Dosage: 1000 MG, UNK
     Route: 065
     Dates: start: 20151209
  3. MYCOPHENOLATE MOFETIL. [Concomitant]
     Active Substance: MYCOPHENOLATE MOFETIL
     Dosage: 1000 MG, UNK
     Route: 065
     Dates: start: 20160113
  4. TACROLIMUS MONOHYDRATE [Concomitant]
     Active Substance: TACROLIMUS
     Dosage: 6.5 MG, UNK
     Route: 065
     Dates: start: 20161207
  5. MYCOPHENOLATE MOFETIL. [Concomitant]
     Active Substance: MYCOPHENOLATE MOFETIL
     Dosage: 1000 MG, UNK
     Route: 065
     Dates: start: 20161207
  6. OLMETEC [Concomitant]
     Active Substance: OLMESARTAN MEDOXOMIL
     Indication: HYPERTENSION
     Dosage: UNK
     Route: 048
  7. TACROLIMUS MONOHYDRATE [Concomitant]
     Active Substance: TACROLIMUS
     Dosage: 5 MG, UNK
     Route: 065
     Dates: start: 20160113
  8. CERTICAN [Suspect]
     Active Substance: EVEROLIMUS
     Dosage: 2 MG, UNK
     Route: 048
     Dates: start: 20160113, end: 20160629
  9. MYCOPHENOLATE MOFETIL. [Concomitant]
     Active Substance: MYCOPHENOLATE MOFETIL
     Dosage: 1000 MG, UNK
     Route: 065
     Dates: start: 20171109, end: 20171109
  10. CERTICAN [Suspect]
     Active Substance: EVEROLIMUS
     Indication: RENAL TRANSPLANT
     Dosage: 1.5 MG, QD
     Route: 048
     Dates: start: 20151209, end: 20160113
  11. CERTICAN [Suspect]
     Active Substance: EVEROLIMUS
     Dosage: 2.5 MG, UNK
     Route: 048
     Dates: start: 20160629, end: 20161122
  12. CERTICAN [Suspect]
     Active Substance: EVEROLIMUS
     Dosage: 2.0 MG, UNK
     Route: 048
     Dates: start: 20161122, end: 20171109
  13. OLMETEC [Concomitant]
     Active Substance: OLMESARTAN MEDOXOMIL
     Indication: PROTEINURIA
  14. TACROLIMUS MONOHYDRATE [Concomitant]
     Active Substance: TACROLIMUS
     Dosage: 5 MG, UNK
     Route: 065
     Dates: start: 20160309
  15. MYCOPHENOLATE MOFETIL. [Concomitant]
     Active Substance: MYCOPHENOLATE MOFETIL
     Dosage: 1000 MG, UNK
     Route: 065
     Dates: start: 20160309
  16. MYCOPHENOLATE MOFETIL. [Concomitant]
     Active Substance: MYCOPHENOLATE MOFETIL
     Dosage: 1000 MG, UNK
     Route: 065
     Dates: start: 20160608
  17. TACROLIMUS MONOHYDRATE [Concomitant]
     Active Substance: TACROLIMUS
     Indication: RENAL TRANSPLANT
     Dosage: 3 MG, UNK
     Route: 065
     Dates: start: 20151209
  18. TACROLIMUS MONOHYDRATE [Concomitant]
     Active Substance: TACROLIMUS
     Dosage: 5 MG, UNK
     Route: 065
     Dates: start: 20160608

REACTIONS (6)
  - Kidney transplant rejection [Recovering/Resolving]
  - Chronic allograft nephropathy [Unknown]
  - Concomitant disease progression [Unknown]
  - Renal transplant failure [Not Recovered/Not Resolved]
  - Renal impairment [Unknown]
  - Albumin urine present [Not Recovered/Not Resolved]

NARRATIVE: CASE EVENT DATE: 20160113
